FAERS Safety Report 21261529 (Version 1)
Quarter: 2022Q3

REPORT INFORMATION
  Report Type: Other
  Country: PT (occurrence: PT)
  Receive Date: 20220827
  Receipt Date: 20220827
  Transmission Date: 20221026
  Serious: Yes (Other)
  Sender: FDA-Public Use
  Company Number: PT-CELLTRION INC.-2022PT013429

PATIENT

DRUGS (5)
  1. HERZUMA [Suspect]
     Active Substance: TRASTUZUMAB-PKRB
     Indication: Breast cancer
     Dates: start: 20210902
  2. PERTUZUMAB [Concomitant]
     Active Substance: PERTUZUMAB
     Dosage: UNK
  3. CARBOPLATIN [Concomitant]
     Active Substance: CARBOPLATIN
     Dates: start: 20210902, end: 20211215
  4. ANASTROZOLE [Concomitant]
     Active Substance: ANASTROZOLE
  5. DOCETAXEL [Concomitant]
     Active Substance: DOCETAXEL
     Dates: start: 20210902, end: 20211215

REACTIONS (3)
  - Thrombocytopenia [Unknown]
  - Blood creatinine increased [Unknown]
  - Anaemia [Unknown]

NARRATIVE: CASE EVENT DATE: 20211012
